FAERS Safety Report 15302324 (Version 2)
Quarter: 2018Q4

REPORT INFORMATION
  Report Type: Report from Study
  Country: None (occurrence: US)
  Receive Date: 20180821
  Receipt Date: 20181005
  Transmission Date: 20190204
  Serious: Yes (Other)
  Sender: FDA-Public Use
  Company Number: US-ABBVIE-18K-163-2453671-00

PATIENT
  Age: 27 Year
  Sex: Male
  Weight: 78.09 kg

DRUGS (1)
  1. HUMIRA [Suspect]
     Active Substance: ADALIMUMAB
     Indication: CROHN^S DISEASE
     Route: 058
     Dates: start: 201803, end: 20180809

REACTIONS (4)
  - Headache [Unknown]
  - Testis cancer [Recovering/Resolving]
  - Extragonadal primary germ cell tumour [Recovering/Resolving]
  - Abdominal neoplasm [Recovering/Resolving]

NARRATIVE: CASE EVENT DATE: 2018
